FAERS Safety Report 14848149 (Version 1)
Quarter: 2018Q2

REPORT INFORMATION
  Report Type: Spontaneous
  Country: US (occurrence: US)
  Receive Date: 20180419
  Receipt Date: 20180419
  Transmission Date: 20180711
  Serious: Yes (Hospitalization)
  Sender: FDA-Public Use
  Company Number: None

PATIENT
  Age: 67 Year
  Sex: Female
  Weight: 112.9 kg

DRUGS (4)
  1. FENTANYL. [Concomitant]
     Active Substance: FENTANYL
     Dates: start: 20180415
  2. PROPOFOL. [Concomitant]
     Active Substance: PROPOFOL
     Dates: start: 20180415
  3. LUMASON [Suspect]
     Active Substance: SULFUR HEXAFLUORIDE
     Indication: ECHOCARDIOGRAM
     Route: 040
     Dates: start: 20180416, end: 20180416
  4. PANTOPRAZOLE [Concomitant]
     Active Substance: PANTOPRAZOLE
     Dates: start: 20180416

REACTIONS (1)
  - Hypersensitivity [None]

NARRATIVE: CASE EVENT DATE: 20180416
